FAERS Safety Report 18088422 (Version 3)
Quarter: 2020Q4

REPORT INFORMATION
  Report Type: Spontaneous
  Country: JP (occurrence: JP)
  Receive Date: 20200729
  Receipt Date: 20201027
  Transmission Date: 20210113
  Serious: Yes (Hospitalization)
  Sender: FDA-Public Use
  Company Number: JP-DSJP-DSJ-2020-121062

PATIENT
  Age: 85 Year
  Sex: Male
  Weight: 44 kg

DRUGS (11)
  1. DONEPEZIL HYDROCHLORIDE ACCORD [Concomitant]
     Dosage: 3 MG, QD
     Route: 048
     Dates: start: 20200808
  2. CELECOX [Concomitant]
     Active Substance: CELECOXIB
     Dosage: 100 MG, BID
     Route: 048
     Dates: end: 20200719
  3. TAMSULOSIN                         /01280302/ [Concomitant]
     Active Substance: TAMSULOSIN HYDROCHLORIDE
     Indication: BENIGN PROSTATIC HYPERPLASIA
     Dosage: 0.1 MG, QD
     Route: 048
     Dates: end: 20200719
  4. ZETIA [Concomitant]
     Active Substance: EZETIMIBE
     Indication: DYSLIPIDAEMIA
     Dosage: 10 MG, QD
     Route: 048
     Dates: end: 20200719
  5. TAMSULOSIN                         /01280302/ [Concomitant]
     Active Substance: TAMSULOSIN HYDROCHLORIDE
     Dosage: 0.1 MG, QD
     Route: 048
     Dates: start: 20200724
  6. MECOBALAMIN [Concomitant]
     Active Substance: METHYLCOBALAMIN
     Dosage: 0.5 MG, BID
     Route: 048
     Dates: end: 20200719
  7. DONEPEZIL HYDROCHLORIDE ACCORD [Concomitant]
     Indication: DEMENTIA ALZHEIMER^S TYPE
     Dosage: 10 MG, QD
     Route: 048
  8. FAMOTIDINE. [Concomitant]
     Active Substance: FAMOTIDINE
     Indication: ABDOMINAL DISCOMFORT
     Dosage: 20 MG, QD
     Route: 048
  9. LIXIANA TABLETS 30MG [Suspect]
     Active Substance: EDOXABAN TOSYLATE
     Indication: ATRIAL FIBRILLATION
     Dosage: 30 MG, QD
     Route: 048
     Dates: start: 20161201, end: 20200719
  10. ROZEREM [Concomitant]
     Active Substance: RAMELTEON
     Indication: INSOMNIA
     Dosage: 8 MG, QD
     Route: 048
  11. YOKUKANSAN [Concomitant]
     Active Substance: HERBALS
     Indication: DEMENTIA ALZHEIMER^S TYPE
     Dosage: 5 G, QD
     Route: 048
     Dates: end: 20200719

REACTIONS (1)
  - Cerebral infarction [Recovering/Resolving]

NARRATIVE: CASE EVENT DATE: 20171213
